FAERS Safety Report 24940180 (Version 2)
Quarter: 2025Q1

REPORT INFORMATION
  Report Type: Report from Study
  Country: US (occurrence: US)
  Receive Date: 20250207
  Receipt Date: 20250228
  Transmission Date: 20250408
  Serious: Yes (Hospitalization, Other)
  Sender: NOVO NORDISK
  Company Number: US-NOVOPROD-1344898

PATIENT
  Age: 82 Year
  Sex: Male

DRUGS (2)
  1. OZEMPIC [Suspect]
     Active Substance: SEMAGLUTIDE
     Route: 058
  2. OZEMPIC [Suspect]
     Active Substance: SEMAGLUTIDE
     Indication: Type 2 diabetes mellitus
     Route: 058
     Dates: start: 202406

REACTIONS (5)
  - Abdominal distension [Unknown]
  - Atrial fibrillation [Unknown]
  - Sinus node dysfunction [Unknown]
  - Constipation [Unknown]
  - Drug ineffective [Unknown]
